FAERS Safety Report 4598735-3 (Version None)
Quarter: 2005Q1

REPORT INFORMATION
  Report Type: 
  Country: None (occurrence: None)
  Receive Date: 20050304
  Receipt Date: 20050217
  Transmission Date: 20050727
  Serious: Yes (Hospitalization)
  Sender: FDA-Public Use
  Company Number: FR-GLAXOSMITHKLINE-B0371943A

PATIENT
  Age: 34 Year
  Sex: Female

DRUGS (8)
  1. FORTUMSET [Suspect]
     Dosage: 1G PER DAY
     Route: 042
     Dates: start: 20041203, end: 20041203
  2. IMUREL [Suspect]
     Indication: MULTIPLE SCLEROSIS
     Route: 065
     Dates: end: 20041130
  3. RIVOTRIL [Concomitant]
     Dosage: 4DROP PER DAY
     Route: 048
     Dates: start: 20031101
  4. XATRAL [Concomitant]
     Dosage: 5MG PER DAY
     Route: 048
     Dates: start: 20010101
  5. LEDERFOLINE [Concomitant]
     Route: 048
  6. HUMALOG MIX [Concomitant]
     Route: 058
  7. ROCEPHIN [Concomitant]
     Route: 065
     Dates: start: 20041130, end: 20041203
  8. CIPROFLOXACIN [Concomitant]
     Route: 042
     Dates: start: 20041130

REACTIONS (10)
  - BLOOD PRESSURE DECREASED [None]
  - BONE MARROW DEPRESSION [None]
  - CHILLS [None]
  - COLD SWEAT [None]
  - ERYTHEMA [None]
  - HEART RATE INCREASED [None]
  - HYPERSENSITIVITY [None]
  - NAUSEA [None]
  - PSEUDOMONAL SEPSIS [None]
  - TREMOR [None]
